FAERS Safety Report 8862642 (Version 3)
Quarter: 2014Q2

REPORT INFORMATION
  Report Type: Spontaneous
  Country: AT (occurrence: AT)
  Receive Date: 20121026
  Receipt Date: 20130920
  Transmission Date: 20141212
  Serious: Yes (Other)
  Sender: FDA-Public Use
  Company Number: AT-009507513-1210AUT006161

PATIENT
  Sex: Female

DRUGS (5)
  1. BRIDION [Suspect]
     Dosage: UNK
     Dates: start: 2012
  2. ESMERON [Concomitant]
     Dosage: UNK
     Dates: start: 2012
  3. SEVOFLURANE [Concomitant]
     Dosage: UNK
     Dates: start: 2012
  4. ULTIVA [Concomitant]
     Dosage: UNK
     Dates: start: 2012
  5. PERIPHERAL OPIOID RECEPTOR ANTAGONIST (UNSPECIFIED) [Concomitant]
     Indication: ANALGESIC THERAPY
     Dosage: UNK
     Dates: start: 2012

REACTIONS (1)
  - Cardiac arrest [Recovered/Resolved]
